FAERS Safety Report 7064595-4 (Version None)
Quarter: 2010Q4

REPORT INFORMATION
  Report Type: 
  Country: None (occurrence: None)
  Receive Date: 20101019
  Receipt Date: 20101005
  Transmission Date: 20110411
  Serious: Yes (Other)
  Sender: FDA-Public Use
  Company Number: GR-1183685

PATIENT
  Age: 8 Month
  Sex: Male

DRUGS (1)
  1. TOBREX [Suspect]
     Indication: PURULENT DISCHARGE
     Dosage: 1 GTT 1X/6 HOURS OU OPHTHALMIC
     Route: 047
     Dates: start: 20100713, end: 20100715

REACTIONS (3)
  - CONDITION AGGRAVATED [None]
  - CONJUNCTIVITIS [None]
  - OCULAR HYPERAEMIA [None]
